FAERS Safety Report 10049538 (Version 2)
Quarter: 2014Q2

REPORT INFORMATION
  Report Type: Spontaneous
  Country: ES (occurrence: None)
  Receive Date: 20140328
  Receipt Date: 20140415
  Transmission Date: 20141212
  Serious: Yes (Life-Threatening, Hospitalization)
  Sender: FDA-Public Use
  Company Number: 2014AP002243

PATIENT
  Age: 83 Year
  Sex: Male

DRUGS (6)
  1. ENALAPRIL MALEATE AND HYDROCHLOROTHIAZIDE TABLETS USP 10/25MG [Suspect]
     Indication: HYPERTENSION
     Route: 048
     Dates: start: 201105, end: 20130620
  2. FUROSEMIDE (FUROSEMIDE) [Suspect]
     Indication: CARDIAC FAILURE
     Route: 048
     Dates: start: 20130604, end: 20130620
  3. DIGOXINA [Suspect]
     Indication: ATRIAL FIBRILLATION
     Route: 048
     Dates: start: 20130611, end: 20130620
  4. DIGOXINA (DIGOXIN) [Concomitant]
  5. ENOXAPARIN (ENOXAPARIN) [Concomitant]
  6. OMEPRAZOL /00661201/ (OMEPRAZOLE) [Concomitant]

REACTIONS (5)
  - Nodal rhythm [None]
  - Toxicity to various agents [None]
  - Vomiting [None]
  - Drug interaction [None]
  - Blood creatinine increased [None]
